FAERS Safety Report 5035706-7 (Version None)
Quarter: 2006Q2

REPORT INFORMATION
  Report Type: 
  Country: None (occurrence: None)
  Receive Date: 20060622
  Receipt Date: 20060605
  Transmission Date: 20061013
  Serious: Yes (Other)
  Sender: FDA-Public Use
  Company Number: 225953

PATIENT
  Sex: Male

DRUGS (2)
  1. XOLAIR [Suspect]
     Dosage: 300 MG, 2/WEEK, SUBCUTANEOUS
     Route: 058
     Dates: start: 20060512
  2. METHOTREXATE [Concomitant]

REACTIONS (6)
  - FATIGUE [None]
  - HAEMORRHAGE URINARY TRACT [None]
  - PARAESTHESIA [None]
  - SHOULDER PAIN [None]
  - THROAT TIGHTNESS [None]
  - TREMOR [None]
